FAERS Safety Report 15221056 (Version 1)
Quarter: 2018Q3

REPORT INFORMATION
  Report Type: Report from Study
  Country: US (occurrence: US)
  Receive Date: 20180731
  Receipt Date: 20180731
  Transmission Date: 20181010
  Serious: Yes (Hospitalization)
  Sender: FDA-Public Use
  Company Number: US-PFIZER INC-2018300241

PATIENT
  Age: 55 Year
  Sex: Female
  Weight: 133.4 kg

DRUGS (7)
  1. FARLETUZUMAB [Suspect]
     Active Substance: FARLETUZUMAB
     Indication: OVARIAN CANCER
     Dosage: LOADING DOSE 10MG/KG OR PLACEBO (1 IN 2 WK)
     Route: 042
     Dates: start: 20180502, end: 201805
  2. PEGYLATED LIPOSOMAL DOXORUBICIN [Suspect]
     Active Substance: DOXORUBICIN
     Indication: OVARIAN CANCER
     Dosage: 30 MG/M2, 1 IN 4 WK (1.0714 MG/M2)
     Route: 042
     Dates: start: 20180502, end: 20180502
  3. MEDROL [Suspect]
     Active Substance: METHYLPREDNISOLONE
     Indication: PAIN OF SKIN
     Dosage: UNK
     Dates: start: 20180627, end: 20180627
  4. FARLETUZUMAB [Suspect]
     Active Substance: FARLETUZUMAB
     Dosage: 5 MG/KG OR PLACEBO (1 IN 2 WK)
     Route: 042
     Dates: start: 201805, end: 20180705
  5. MEDROL [Suspect]
     Active Substance: METHYLPREDNISOLONE
     Indication: INFUSION RELATED REACTION
     Dosage: UNK
     Dates: start: 20180502, end: 20180502
  6. CARBOPLATIN. [Suspect]
     Active Substance: CARBOPLATIN
     Indication: OVARIAN CANCER
     Dosage: 5 AUC ( 1 IN 4 WK)
     Route: 042
     Dates: start: 20180502, end: 20180627
  7. MEDROL [Suspect]
     Active Substance: METHYLPREDNISOLONE
     Indication: LYMPH NODE PAIN
     Dosage: UNK
     Dates: start: 20180702

REACTIONS (4)
  - Anxiety [Not Recovered/Not Resolved]
  - Back pain [Not Recovered/Not Resolved]
  - Infusion related reaction [Recovered/Resolved]
  - Infusion related reaction [Recovering/Resolving]

NARRATIVE: CASE EVENT DATE: 20180502
